FAERS Safety Report 19716035 (Version 1)
Quarter: 2021Q3

REPORT INFORMATION
  Report Type: Other
  Country: CN (occurrence: CN)
  Receive Date: 20210818
  Receipt Date: 20210818
  Transmission Date: 20211014
  Serious: Yes (Other)
  Sender: FDA-Public Use
  Company Number: CN-ROCHE-2889820

PATIENT

DRUGS (4)
  1. BEVACIZUMAB. [Suspect]
     Active Substance: BEVACIZUMAB
     Indication: CERVIX CARCINOMA
     Route: 065
  2. DOCETAXEL. [Suspect]
     Active Substance: DOCETAXEL
     Indication: CERVIX CARCINOMA
     Route: 065
  3. CISPLATIN. [Suspect]
     Active Substance: CISPLATIN
     Indication: CERVIX CARCINOMA
     Route: 065
  4. CISPLATIN. [Suspect]
     Active Substance: CISPLATIN
     Route: 065

REACTIONS (10)
  - Nausea [Unknown]
  - Epistaxis [Unknown]
  - Fatigue [Unknown]
  - Hypertension [Unknown]
  - Haematochezia [Unknown]
  - Urinary tract disorder [Unknown]
  - Neutropenia [Unknown]
  - Blood urine [Unknown]
  - Febrile neutropenia [Unknown]
  - Diarrhoea [Unknown]
